FAERS Safety Report 7509604-0 (Version None)
Quarter: 2011Q2

REPORT INFORMATION
  Report Type: 
  Country: None (occurrence: None)
  Receive Date: 20110527
  Receipt Date: 20110506
  Transmission Date: 20111010
  Serious: No
  Sender: FDA-Public Use
  Company Number: US-B.I. PHARMACEUTICALS,INC./RIDGEFIELD-2011-BP-08920BP

PATIENT
  Sex: Male

DRUGS (4)
  1. AMIODARONE HCL [Concomitant]
  2. PRILOSEC OTC [Concomitant]
  3. PRADAXA [Suspect]
     Indication: DRUG HYPERSENSITIVITY
     Dosage: 300 MG
  4. DILTIAZEM HCL [Concomitant]

REACTIONS (1)
  - WEIGHT DECREASED [None]
